FAERS Safety Report 13329731 (Version 2)
Quarter: 2017Q1

REPORT INFORMATION
  Report Type: Spontaneous
  Country: US (occurrence: US)
  Receive Date: 20170313
  Receipt Date: 20170330
  Transmission Date: 20170428
  Serious: Yes (Other)
  Sender: FDA-Public Use
  Company Number: US-PFIZER INC-2017104822

PATIENT
  Age: 16 Year
  Sex: Female

DRUGS (2)
  1. XYLOCAINE #1 [Concomitant]
     Dosage: UNK, INJECTION OF 2 ML OF 2% XYLOCAINE
  2. EPINEPHRINE. [Suspect]
     Active Substance: EPINEPHRINE
     Indication: RHINOPLASTY
     Dosage: INFILTRATIVE, 1:100,000

REACTIONS (1)
  - Stress cardiomyopathy [Recovered/Resolved]
